FAERS Safety Report 4752737-2 (Version None)
Quarter: 2005Q3

REPORT INFORMATION
  Report Type: 
  Country: None (occurrence: None)
  Receive Date: 20050823
  Receipt Date: 20050811
  Transmission Date: 20060218
  Serious: Yes (Other)
  Sender: FDA-Public Use
  Company Number: SE-2005-016422

PATIENT
  Sex: 0

DRUGS (1)
  1. CAMPATH [Suspect]
     Dosage: UNK
     Route: 065

REACTIONS (1)
  - DEAFNESS [None]
